FAERS Safety Report 5145331-5 (Version None)
Quarter: 2006Q4

REPORT INFORMATION
  Report Type: 
  Country: None (occurrence: None)
  Receive Date: 20061107
  Receipt Date: 20061030
  Transmission Date: 20070319
  Serious: Yes (Other)
  Sender: FDA-Public Use
  Company Number: US-ELI_LILLY_AND_COMPANY-US200611000074

PATIENT
  Sex: Male

DRUGS (1)
  1. HUMULIN N [Suspect]
     Indication: DIABETES MELLITUS
     Dosage: 25 U, EACH MORNING

REACTIONS (2)
  - CEREBROVASCULAR ACCIDENT [None]
  - MEMORY IMPAIRMENT [None]
